FAERS Safety Report 5987179-5 (Version None)
Quarter: 2008Q4

REPORT INFORMATION
  Report Type: 
  Country: None (occurrence: None)
  Receive Date: 20081209
  Receipt Date: 20081202
  Transmission Date: 20090506
  Serious: Yes (Other)
  Sender: FDA-Public Use
  Company Number: US-JNJFOC-20081102434

PATIENT
  Sex: Female
  Weight: 61.24 kg

DRUGS (4)
  1. IBUPROFEN TABLETS [Suspect]
     Indication: SYSTEMIC LUPUS ERYTHEMATOSUS
  2. CHANTIX [Interacting]
     Indication: SMOKING CESSATION THERAPY
  3. HYDROCHLOROQUINE [Interacting]
     Indication: SYSTEMIC LUPUS ERYTHEMATOSUS
     Dosage: TAKEN DAILY, ALTERNATING 200 MG WITH 400 MG
  4. AMITRIPTYLLIN [Interacting]
     Indication: SYSTEMIC LUPUS ERYTHEMATOSUS

REACTIONS (3)
  - DRUG INTERACTION [None]
  - OEDEMA PERIPHERAL [None]
  - SYSTEMIC LUPUS ERYTHEMATOSUS [None]
